FAERS Safety Report 4262944-3 (Version None)
Quarter: 2004Q1

REPORT INFORMATION
  Report Type: 
  Country: None (occurrence: None)
  Receive Date: 20040102
  Receipt Date: 20040102
  Transmission Date: 20041129
  Serious: No
  Sender: FDA-Public Use
  Company Number: None

PATIENT
  Age: 60 Year
  Sex: Male
  Weight: 55.3388 kg

DRUGS (4)
  1. LEVOXYL [Suspect]
     Indication: HYPOTHYROIDISM
     Dosage: ONE/DAY
  2. PRAVACHOL [Concomitant]
  3. ALTACE [Concomitant]
  4. ASAPIRIN [Concomitant]

REACTIONS (1)
  - LABORATORY TEST ABNORMAL [None]
